FAERS Safety Report 6929757-2 (Version None)
Quarter: 2010Q3

REPORT INFORMATION
  Report Type: 
  Country: None (occurrence: None)
  Receive Date: 20100818
  Receipt Date: 20100811
  Transmission Date: 20110219
  Serious: Yes (Hospitalization)
  Sender: FDA-Public Use
  Company Number: US-ASTRAZENECA-2007UW25101

PATIENT
  Age: 32 Year
  Sex: Female
  Weight: 78.9 kg

DRUGS (36)
  1. SEROQUEL [Suspect]
     Indication: DEPRESSION
     Route: 048
     Dates: start: 20040101
  2. SEROQUEL [Suspect]
     Indication: INSOMNIA
     Route: 048
     Dates: start: 20040101
  3. SEROQUEL [Suspect]
     Indication: BIPOLAR DISORDER
     Route: 048
     Dates: start: 20040101
  4. SEROQUEL [Suspect]
     Indication: SLEEP DISORDER
     Route: 048
     Dates: start: 20040101
  5. SEROQUEL [Suspect]
     Indication: SUICIDAL IDEATION
     Route: 048
     Dates: start: 20040101
  6. SEROQUEL [Suspect]
     Dosage: 25MG-400MG
     Route: 048
     Dates: start: 20041015
  7. SEROQUEL [Suspect]
     Dosage: 25MG-400MG
     Route: 048
     Dates: start: 20041015
  8. SEROQUEL [Suspect]
     Dosage: 25MG-400MG
     Route: 048
     Dates: start: 20041015
  9. SEROQUEL [Suspect]
     Dosage: 25MG-400MG
     Route: 048
     Dates: start: 20041015
  10. SEROQUEL [Suspect]
     Dosage: 25MG-400MG
     Route: 048
     Dates: start: 20041015
  11. SEROQUEL [Suspect]
     Dosage: 25-300 MG
     Route: 048
     Dates: start: 20041001, end: 20071201
  12. SEROQUEL [Suspect]
     Dosage: 25-300 MG
     Route: 048
     Dates: start: 20041001, end: 20071201
  13. SEROQUEL [Suspect]
     Dosage: 25-300 MG
     Route: 048
     Dates: start: 20041001, end: 20071201
  14. SEROQUEL [Suspect]
     Dosage: 25-300 MG
     Route: 048
     Dates: start: 20041001, end: 20071201
  15. SEROQUEL [Suspect]
     Dosage: 25-300 MG
     Route: 048
     Dates: start: 20041001, end: 20071201
  16. TRAZODONE HCL [Suspect]
     Route: 065
  17. LEXAPRO [Concomitant]
     Indication: DEPRESSION
     Route: 065
  18. LEXAPRO [Concomitant]
     Indication: ANXIETY
     Route: 065
  19. DEPAKOTE [Concomitant]
     Dosage: 750 MG-1250 MG
     Route: 065
  20. TOPAMAX [Concomitant]
     Route: 065
  21. ACTOS [Concomitant]
     Route: 065
  22. XANAX [Concomitant]
     Route: 065
     Dates: start: 20040101
  23. VALIUM [Concomitant]
     Dosage: 0.5 MG - 10 MG
     Route: 065
  24. RISPERDAL [Concomitant]
     Route: 065
     Dates: start: 20060701, end: 20060801
  25. HYDROXYZINE PAM [Concomitant]
     Dosage: 12.5 MG - 50 MG
     Route: 065
  26. IBUPROFEN [Concomitant]
     Dosage: 600MG - 800MG, EVERY 6 HOURS
     Route: 065
  27. ABILIFY [Concomitant]
     Dosage: 10-15 MG
     Route: 065
     Dates: start: 20060101
  28. AVANDIA [Concomitant]
     Route: 065
  29. ALBUTEROL [Concomitant]
     Indication: BRONCHITIS
     Dosage: TWO PUFFS TWICE A DAY
     Route: 065
  30. ALLEGRA D 24 HOUR [Concomitant]
     Indication: RHINITIS ALLERGIC
     Route: 065
  31. LAMICTAL [Concomitant]
     Route: 065
  32. GEODON [Concomitant]
     Dates: start: 20060801
  33. ZOLOFT [Concomitant]
     Dates: start: 19900101
  34. EFFEXOR [Concomitant]
     Dates: start: 19900101
  35. PAXIL [Concomitant]
     Dates: start: 19900101
  36. LORITAB [Concomitant]
     Dosage: 10
     Dates: start: 20040101

REACTIONS (44)
  - ABDOMINAL PAIN LOWER [None]
  - ARTHRALGIA [None]
  - BIPOLAR DISORDER [None]
  - BIPOLAR I DISORDER [None]
  - BLOOD CHOLESTEROL INCREASED [None]
  - BLOOD POTASSIUM INCREASED [None]
  - BLOOD PRESSURE INCREASED [None]
  - BLOOD TRIGLYCERIDES INCREASED [None]
  - BREAST ABSCESS [None]
  - BRONCHITIS [None]
  - CARDIAC DISORDER [None]
  - CONSTIPATION [None]
  - DEPRESSION [None]
  - DIABETES MELLITUS [None]
  - DIABETIC COMPLICATION [None]
  - DIZZINESS [None]
  - EYELID OEDEMA [None]
  - FATIGUE [None]
  - GASTRITIS [None]
  - GASTROOESOPHAGEAL REFLUX DISEASE [None]
  - GENERALISED ANXIETY DISORDER [None]
  - GESTATIONAL DIABETES [None]
  - GINGIVAL DISORDER [None]
  - GLYCOSURIA [None]
  - HYPERLIPIDAEMIA [None]
  - MENSTRUAL DISORDER [None]
  - NAUSEA [None]
  - OBESITY [None]
  - PANIC DISORDER WITH AGORAPHOBIA [None]
  - POLYURIA [None]
  - RHINITIS ALLERGIC [None]
  - SCOLIOSIS [None]
  - SINUSITIS [None]
  - SNEEZING [None]
  - STRESS [None]
  - SUBCUTANEOUS ABSCESS [None]
  - SUICIDAL IDEATION [None]
  - TOOTH ABSCESS [None]
  - TYPE 2 DIABETES MELLITUS [None]
  - URINARY TRACT INFECTION [None]
  - VIRAL UPPER RESPIRATORY TRACT INFECTION [None]
  - VISION BLURRED [None]
  - VOMITING [None]
  - WEIGHT DECREASED [None]
